FAERS Safety Report 16665360 (Version 2)
Quarter: 2020Q2

REPORT INFORMATION
  Report Type: Spontaneous
  Country: US (occurrence: US)
  Receive Date: 20190803
  Receipt Date: 20200619
  Transmission Date: 20200713
  Serious: Yes (Other)
  Sender: FDA-Public Use
  Company Number: US-GILEAD-2019-0421605

PATIENT
  Age: 57 Year
  Sex: Male
  Weight: 114.29 kg

DRUGS (24)
  1. CAPSAICIN. [Concomitant]
     Active Substance: CAPSAICIN
  2. CLOBETASOL [Concomitant]
     Active Substance: CLOBETASOL
  3. AMLODIPINE [Concomitant]
     Active Substance: AMLODIPINE BESYLATE
  4. OMEPRAZOLE. [Concomitant]
     Active Substance: OMEPRAZOLE
  5. TRIAMCINOLONE [Concomitant]
     Active Substance: TRIAMCINOLONE
  6. SYMTUZA [Concomitant]
     Active Substance: COBICISTAT\DARUNAVIR\EMTRICITABINE\TENOFOVIR ALAFENAMIDE
  7. LISINOPRIL. [Suspect]
     Active Substance: LISINOPRIL
     Dosage: 20 MG, QD
     Route: 048
     Dates: start: 2016
  8. ATORVASTATIN [Concomitant]
     Active Substance: ATORVASTATIN
  9. CYCLOBENZAPRINE. [Concomitant]
     Active Substance: CYCLOBENZAPRINE
  10. TRIUMEQ [Concomitant]
     Active Substance: ABACAVIR SULFATE\DOLUTEGRAVIR SODIUM\LAMIVUDINE
  11. IBUPROFEN. [Suspect]
     Active Substance: IBUPROFEN
     Indication: PAIN
     Dosage: 800 MG, BID
     Route: 048
     Dates: start: 2017, end: 20181115
  12. IBUPROFEN. [Suspect]
     Active Substance: IBUPROFEN
     Indication: INFLAMMATION
  13. PREGABALIN. [Concomitant]
     Active Substance: PREGABALIN
  14. ACETAMINOPHEN. [Concomitant]
     Active Substance: ACETAMINOPHEN
  15. ALBUTEROL SULFATE. [Concomitant]
     Active Substance: ALBUTEROL SULFATE
  16. ATRIPLA [Suspect]
     Active Substance: EFAVIRENZ\EMTRICITABINE\TENOFOVIR DISOPROXIL FUMARATE
     Indication: HIV INFECTION
     Dosage: UNK
     Route: 048
     Dates: start: 201604, end: 201811
  17. METOPROLOL. [Concomitant]
     Active Substance: METOPROLOL
  18. CHLORTHALIDONE. [Concomitant]
     Active Substance: CHLORTHALIDONE
  19. ALLOPURINOL. [Concomitant]
     Active Substance: ALLOPURINOL
  20. LISINOPRIL. [Suspect]
     Active Substance: LISINOPRIL
     Indication: BLOOD PRESSURE MEASUREMENT
     Dosage: 40 MG, QD
     Route: 048
     Dates: start: 201803, end: 20181115
  21. CHOLECALCIFEROL [Concomitant]
     Active Substance: CHOLECALCIFEROL
  22. TRAZODONE [Concomitant]
     Active Substance: TRAZODONE HYDROCHLORIDE
  23. DULOXETINE. [Concomitant]
     Active Substance: DULOXETINE
  24. LIDOCAINE. [Concomitant]
     Active Substance: LIDOCAINE

REACTIONS (8)
  - Emotional distress [Unknown]
  - Anhedonia [Unknown]
  - Chronic kidney disease [Not Recovered/Not Resolved]
  - Economic problem [Unknown]
  - Blood creatinine increased [Unknown]
  - Anxiety [Unknown]
  - Renal failure [Unknown]
  - Pain [Unknown]

NARRATIVE: CASE EVENT DATE: 201901
